FAERS Safety Report 22084978 (Version 7)
Quarter: 2024Q1

REPORT INFORMATION
  Report Type: Spontaneous
  Country: US (occurrence: US)
  Receive Date: 20230310
  Receipt Date: 20240131
  Transmission Date: 20240410
  Serious: No
  Sender: FDA-Public Use
  Company Number: US-PFIZER INC-PV202300045902

PATIENT
  Age: 64 Year
  Sex: Female

DRUGS (4)
  1. BRAFTOVI [Suspect]
     Active Substance: ENCORAFENIB
     Indication: Pancreatic carcinoma metastatic
     Dosage: 300 MG (I WAS TAKING 4 CAPSULES)
  2. BRAFTOVI [Suspect]
     Active Substance: ENCORAFENIB
     Dosage: 75 MG, 2X/DAY (I TAKE 2 - 1 IN THE MORNING AND 1 AT NIGHT)
  3. BRAFTOVI [Suspect]
     Active Substance: ENCORAFENIB
     Dosage: 300 MG, DAILY
     Route: 048
  4. BRAFTOVI [Suspect]
     Active Substance: ENCORAFENIB
     Dosage: 75 MG

REACTIONS (4)
  - Off label use [Unknown]
  - Intentional product misuse [Unknown]
  - Pain [Unknown]
  - General physical health deterioration [Not Recovered/Not Resolved]
